FAERS Safety Report 10070963 (Version 1)
Quarter: 2014Q2

REPORT INFORMATION
  Report Type: Spontaneous
  Country: US (occurrence: US)
  Receive Date: 20140410
  Receipt Date: 20140410
  Transmission Date: 20141212
  Serious: Yes (Other)
  Sender: FDA-Public Use
  Company Number: US-MYLANLABS-2014S1007935

PATIENT
  Age: 60 Year
  Sex: Female
  Weight: 61.24 kg

DRUGS (3)
  1. EMSAM (SELEGILINE TRANSDERMAL SYSTEM) [Suspect]
     Indication: DEPRESSION
     Dosage: CHANGED Q24H
     Route: 062
  2. ABILIFY [Concomitant]
  3. LITHIUM [Concomitant]

REACTIONS (5)
  - Drug effect decreased [Not Recovered/Not Resolved]
  - Convulsion [Not Recovered/Not Resolved]
  - Suicidal ideation [Not Recovered/Not Resolved]
  - Depression [Not Recovered/Not Resolved]
  - Activities of daily living impaired [Not Recovered/Not Resolved]
